FAERS Safety Report 5207129-9 (Version None)
Quarter: 2007Q1

REPORT INFORMATION
  Report Type: 
  Country: None (occurrence: None)
  Receive Date: 20070110
  Receipt Date: 20070104
  Transmission Date: 20070707
  Serious: Yes (Death)
  Sender: FDA-Public Use
  Company Number: 163-21880-06120267

PATIENT
  Age: 54 Year
  Sex: Male

DRUGS (8)
  1. REVLIMID [Suspect]
     Indication: MULTIPLE MYELOMA
     Dosage: 20MG ON EVEN DAYS AND 10MG ON ODD DAYS, ORAL
     Route: 048
     Dates: start: 20060919, end: 20061206
  2. MS CONTIN (MORPHINE SULFATE) (CAPSULES) [Concomitant]
  3. DILAUDID [Concomitant]
  4. DEXAMETHASONE TAB [Concomitant]
  5. LOVENOX (HEPARIN-FRACTION, SODIUM SALT) (CAPSULES) [Concomitant]
  6. COUMADIN [Concomitant]
  7. PROTONIX [Concomitant]
  8. ALUMINUM HYDROXIDE AND MAGNESIUM TRISILICATE [Concomitant]

REACTIONS (1)
  - DEATH [None]
